FAERS Safety Report 22003574 (Version 2)
Quarter: 2023Q1

REPORT INFORMATION
  Report Type: Report from Study
  Country: US (occurrence: None)
  Receive Date: 20230217
  Receipt Date: 20230310
  Transmission Date: 20230417
  Serious: Yes (Disabling, Other)
  Sender: FDA-Public Use
  Company Number: US-Merck Healthcare KGaA-9377490

PATIENT
  Sex: Female

DRUGS (1)
  1. REBIF [Suspect]
     Active Substance: INTERFERON BETA-1A
     Indication: Multiple sclerosis
     Route: 058
     Dates: start: 20151228, end: 20230210

REACTIONS (3)
  - Visual impairment [Recovering/Resolving]
  - Blindness [Unknown]
  - Asthenia [Unknown]
